FAERS Safety Report 6612526-0 (Version None)
Quarter: 2010Q1

REPORT INFORMATION
  Report Type: 
  Country: None (occurrence: None)
  Receive Date: 20100303
  Receipt Date: 20100219
  Transmission Date: 20100710
  Serious: Yes (Life-Threatening, Hospitalization)
  Sender: FDA-Public Use
  Company Number: JP-PFIZER INC-2010018183

PATIENT
  Age: 64 Year
  Sex: Female
  Weight: 49 kg

DRUGS (6)
  1. SUNITINIB MALATE [Suspect]
     Indication: RENAL CELL CARCINOMA
     Dosage: 12.5 MG, 1X/DAY
     Route: 048
     Dates: start: 20090817, end: 20091019
  2. FAMOTIDINE [Concomitant]
     Dosage: UNK
     Route: 048
     Dates: start: 20090811, end: 20091125
  3. LOXOPROFEN SODIUM [Concomitant]
     Dosage: UNK
     Route: 048
     Dates: start: 20090811, end: 20091125
  4. PRIMPERAN [Concomitant]
     Dosage: UNK
     Route: 048
     Dates: start: 20090815, end: 20091116
  5. LENDORMIN [Concomitant]
     Dosage: UNK
     Route: 048
     Dates: start: 20090825, end: 20091125
  6. THYRADIN S [Concomitant]
     Dosage: UNK
     Route: 048
     Dates: start: 20090901, end: 20091116

REACTIONS (3)
  - HAEMATURIA [None]
  - PLATELET COUNT DECREASED [None]
  - WHITE BLOOD CELL COUNT DECREASED [None]
